FAERS Safety Report 8561866-7 (Version None)
Quarter: 2012Q3

REPORT INFORMATION
  Report Type: 
  Country: None (occurrence: None)
  Receive Date: 20120802
  Receipt Date: 20120717
  Transmission Date: 20120928
  Serious: No
  Sender: FDA-Public Use
  Company Number: US-AMGEN-USASP2012038352

PATIENT
  Age: 43 Year
  Sex: Male
  Weight: 126.98 kg

DRUGS (1)
  1. ENBREL [Suspect]
     Indication: PSORIASIS
     Dosage: 50 MG, 2 TIMES/WK
     Route: 058
     Dates: start: 20120606

REACTIONS (4)
  - INJECTION SITE HAEMORRHAGE [None]
  - INJURY [None]
  - INJECTION SITE PAIN [None]
  - NAUSEA [None]
